FAERS Safety Report 14372781 (Version 7)
Quarter: 2018Q3

REPORT INFORMATION
  Report Type: Report from Study
  Country: CA (occurrence: CA)
  Receive Date: 20180110
  Receipt Date: 20180705
  Transmission Date: 20181010
  Serious: Yes (Hospitalization)
  Sender: FDA-Public Use
  Company Number: CA-TAKEDA-2018TUS000452

PATIENT
  Age: 68 Year
  Sex: Male

DRUGS (4)
  1. PREDNISONE. [Suspect]
     Active Substance: PREDNISONE
     Indication: DEHYDRATION
     Dosage: 5 MG, 1/WEEK
     Route: 065
     Dates: start: 20170929
  2. PENTASA [Concomitant]
     Active Substance: MESALAMINE
     Dosage: 4 G, QD
     Dates: start: 20170703
  3. VEDOLIZUMAB [Suspect]
     Active Substance: VEDOLIZUMAB
     Indication: COLITIS ULCERATIVE
     Dosage: 300 MG, UNK
     Route: 042
     Dates: start: 20171123
  4. PREDNISONE. [Suspect]
     Active Substance: PREDNISONE
     Indication: COLITIS

REACTIONS (5)
  - Haemoglobin decreased [Unknown]
  - Dehydration [Unknown]
  - Weight increased [Unknown]
  - Colitis ulcerative [Not Recovered/Not Resolved]
  - Faecal calprotectin increased [Unknown]
